FAERS Safety Report 4559525-0 (Version None)
Quarter: 2005Q1

REPORT INFORMATION
  Report Type: 
  Country: None (occurrence: None)
  Receive Date: 20050119
  Receipt Date: 20050110
  Transmission Date: 20050727
  Serious: Yes (Other)
  Sender: FDA-Public Use
  Company Number: 2005004999

PATIENT
  Age: 25 Year
  Sex: Female
  Weight: 49.8957 kg

DRUGS (2)
  1. DEPO-PROVERA [Suspect]
     Indication: CONTRACEPTION
     Dosage: 150 MG (150 MG, EVERY 10-13 WEEKS, 1ST INJ) INTRAMUSCULAR ; 150 MG (150 MG EVERY 10-13 WEEKS, LAST I
     Route: 030
     Dates: start: 20010124, end: 20010124
  2. DEPO-PROVERA [Suspect]
     Indication: CONTRACEPTION
     Dosage: 150 MG (150 MG, EVERY 10-13 WEEKS, 1ST INJ) INTRAMUSCULAR ; 150 MG (150 MG EVERY 10-13 WEEKS, LAST I
     Route: 030
     Dates: start: 20040501, end: 20040501

REACTIONS (21)
  - ABNORMAL BEHAVIOUR [None]
  - AGGRESSION [None]
  - AMNESIA [None]
  - ANGER [None]
  - ARTHRALGIA [None]
  - BREAST MASS [None]
  - BREAST PAIN [None]
  - CRYING [None]
  - DEPRESSION [None]
  - FEELING ABNORMAL [None]
  - INSOMNIA [None]
  - IRRITABILITY [None]
  - LOSS OF LIBIDO [None]
  - MENSTRUATION IRREGULAR [None]
  - PANIC ATTACK [None]
  - SCREAMING [None]
  - SUICIDAL IDEATION [None]
  - VAGINAL DISCHARGE [None]
  - VAGINAL ODOUR [None]
  - VOMITING IN PREGNANCY [None]
  - WEIGHT DECREASED [None]
